FAERS Safety Report 19563805 (Version 1)
Quarter: 2021Q3

REPORT INFORMATION
  Report Type: Spontaneous
  Country: US (occurrence: US)
  Receive Date: 20210716
  Receipt Date: 20210716
  Transmission Date: 20211014
  Serious: Yes (Hospitalization)
  Sender: FDA-Public Use
  Company Number: None

PATIENT
  Age: 37 Year
  Sex: Female
  Weight: 67.9 kg

DRUGS (1)
  1. FERAHEME [Suspect]
     Active Substance: FERUMOXYTOL NON-STOICHIOMETRIC MAGNETITE
     Indication: IRON DEFICIENCY ANAEMIA
     Dosage: ?          OTHER FREQUENCY:ONE TIME;?
     Route: 041

REACTIONS (9)
  - Burning sensation [None]
  - Dizziness [None]
  - Tremor [None]
  - Chills [None]
  - Dyspnoea [None]
  - Throat irritation [None]
  - Urticaria [None]
  - Asthenia [None]
  - Chest discomfort [None]

NARRATIVE: CASE EVENT DATE: 20210416
